FAERS Safety Report 9513848 (Version 1)
Quarter: 2013Q3

REPORT INFORMATION
  Report Type: Spontaneous
  Country: FR (occurrence: FR)
  Receive Date: 20130910
  Receipt Date: 20130910
  Transmission Date: 20140515
  Serious: Yes (Other)
  Sender: FDA-Public Use
  Company Number: PHHY2013FR097623

PATIENT
  Age: 71 Year
  Sex: Male

DRUGS (11)
  1. TAREG [Suspect]
     Indication: HYPERTENSION
     Dosage: 80 MG, QD
     Route: 048
  2. BROMAZEPAM [Suspect]
     Indication: ANXIETY
     Dosage: 0.5 DF, QD
     Route: 048
  3. ZOLPIDEM [Suspect]
     Indication: INSOMNIA
     Dosage: 1 DF, QD
     Route: 048
  4. OMEPRAZOLE [Suspect]
     Dosage: 40 MG, QD
     Route: 048
  5. FINASTERIDE [Suspect]
     Indication: PROSTATIC ADENOMA
     Dosage: 5 MG, QD
     Route: 048
  6. OXALIPLATINE HOSPIRA [Suspect]
     Indication: CHOLANGIOCARCINOMA
     Dosage: UNK (190 MG FIRST CYCLE)
     Route: 042
     Dates: start: 20130222, end: 20130628
  7. GEMZAR [Suspect]
     Indication: CHOLANGIOCARCINOMA
     Dosage: UNK(1920 MG 1ST CYCLE))
     Route: 042
     Dates: start: 20130221
  8. SERETIDE [Suspect]
     Indication: ASTHMA
     Dosage: UNK UKN, UNK
  9. SPIRIVA [Suspect]
     Indication: ASTHMA
     Dosage: UNK UKN, UNK
  10. VENTOLINE [Suspect]
     Indication: ASTHMA
     Dosage: UNK UKN, UNK
  11. FENOFIBRATE [Concomitant]
     Indication: HYPERCHOLESTEROLAEMIA
     Dosage: 1 DF, QD
     Route: 048

REACTIONS (3)
  - Neuropathy peripheral [Not Recovered/Not Resolved]
  - Paraesthesia [Unknown]
  - Pain in extremity [Unknown]
